FAERS Safety Report 12653288 (Version 14)
Quarter: 2020Q2

REPORT INFORMATION
  Report Type: Report from Study
  Country: US (occurrence: US)
  Receive Date: 20160815
  Receipt Date: 20200609
  Transmission Date: 20200713
  Serious: Yes (Hospitalization, Other)
  Sender: FDA-Public Use
  Company Number: US-ACTELION-A-US2016-140511

PATIENT
  Sex: Female
  Weight: 63.49 kg

DRUGS (6)
  1. OXYGEN. [Concomitant]
     Active Substance: OXYGEN
  2. OPSUMIT [Suspect]
     Active Substance: MACITENTAN
     Indication: PULMONARY ARTERIAL HYPERTENSION
     Dosage: 10 MG, QD
     Route: 048
     Dates: start: 20140224
  3. OPSUMIT [Suspect]
     Active Substance: MACITENTAN
     Dosage: 10 MG, QD
     Route: 048
  4. XARELTO [Concomitant]
     Active Substance: RIVAROXABAN
  5. REVATIO [Concomitant]
     Active Substance: SILDENAFIL CITRATE
  6. AMLODIPINE [Concomitant]
     Active Substance: AMLODIPINE BESYLATE

REACTIONS (43)
  - Asthma [Unknown]
  - Blood urine present [Unknown]
  - Oedema [Unknown]
  - Pruritus [Unknown]
  - Glaucoma [Unknown]
  - Epistaxis [Unknown]
  - Exercise tolerance decreased [Unknown]
  - Productive cough [Unknown]
  - Blindness [Unknown]
  - Decreased appetite [Unknown]
  - Gait disturbance [Unknown]
  - Feeling abnormal [Unknown]
  - Chest pain [Unknown]
  - Fall [Not Recovered/Not Resolved]
  - Malaise [Unknown]
  - Peripheral swelling [Unknown]
  - Ascites [Unknown]
  - Dyspnoea exertional [Unknown]
  - Pulmonary thrombosis [Unknown]
  - Chest discomfort [Unknown]
  - Cough [Unknown]
  - Muscular weakness [Unknown]
  - Contusion [Unknown]
  - Head injury [Unknown]
  - Fluid retention [Unknown]
  - Anxiety [Unknown]
  - Nervousness [Unknown]
  - Burning sensation [Unknown]
  - Fatigue [Unknown]
  - Therapy non-responder [Unknown]
  - Haematochezia [Unknown]
  - Cardiac failure congestive [Unknown]
  - Faeces discoloured [Unknown]
  - Thrombosis [Unknown]
  - Weight decreased [Unknown]
  - Unevaluable event [Unknown]
  - Peripheral embolism [Unknown]
  - Dyspnoea [Unknown]
  - Nausea [Unknown]
  - Balance disorder [Not Recovered/Not Resolved]
  - Back pain [Unknown]
  - Haematuria [Unknown]
  - Syncope [Unknown]
